FAERS Safety Report 8888156 (Version 2)
Quarter: 2012Q4

REPORT INFORMATION
  Report Type: 
  Country: CA (occurrence: CA)
  Receive Date: 20121106
  Receipt Date: 20121120
  Transmission Date: 20130627
  Serious: Yes (Other)
  Sender: FDA-Public Use
  Company Number: CA-US-EMD SERONO, INC.-7171623

PATIENT
  Age: 41 None
  Sex: Female

DRUGS (2)
  1. REBIF [Suspect]
     Indication: RELAPSING-REMITTING MULTIPLE SCLEROSIS
     Route: 058
     Dates: start: 20030914, end: 20080101
  2. REBIF [Suspect]
     Route: 058
     Dates: start: 20090807

REACTIONS (6)
  - Venous insufficiency [Unknown]
  - Myopia [Unknown]
  - Thrombosis [Unknown]
  - Urinary tract infection [Unknown]
  - Visual impairment [Unknown]
  - Presbyopia [Unknown]
